FAERS Safety Report 7132498-2 (Version None)
Quarter: 2010Q4

REPORT INFORMATION
  Report Type: 
  Country: None (occurrence: None)
  Receive Date: 20101202
  Receipt Date: 20040217
  Transmission Date: 20110411
  Serious: Yes (Death)
  Sender: FDA-Public Use
  Company Number: AU-ROCHE-742214

PATIENT

DRUGS (1)
  1. FUZEON [Suspect]
     Route: 065

REACTIONS (2)
  - DISEASE PROGRESSION [None]
  - HIV INFECTION [None]
